FAERS Safety Report 24849677 (Version 2)
Quarter: 2025Q1

REPORT INFORMATION
  Report Type: Spontaneous
  Country: FR (occurrence: FR)
  Receive Date: 20250116
  Receipt Date: 20250117
  Transmission Date: 20250409
  Serious: Yes (Other)
  Sender: INSUD PHARMA
  Company Number: FR-EXELTIS PHARMACEUTICAL HOLDING, S.L.-2412FR09839

PATIENT
  Age: 47 Year
  Sex: Female

DRUGS (1)
  1. DROSPIRENONE [Suspect]
     Active Substance: DROSPIRENONE
     Indication: Product used for unknown indication
     Dosage: 4 MILLIGRAM, QD
     Route: 048
     Dates: start: 20241106, end: 20241111

REACTIONS (1)
  - Supraventricular tachycardia [Not Recovered/Not Resolved]
